FAERS Safety Report 9822718 (Version 2)
Quarter: 2014Q1

REPORT INFORMATION
  Report Type: Spontaneous
  Country: JP (occurrence: JP)
  Receive Date: 20140116
  Receipt Date: 20140205
  Transmission Date: 20141002
  Serious: Yes (Hospitalization)
  Sender: FDA-Public Use
  Company Number: PHHY2014JP004245

PATIENT
  Age: 46 Year
  Sex: Male

DRUGS (4)
  1. EPERISONE [Suspect]
     Dosage: 550 MG, UNK
  2. PREGABALIN [Suspect]
     Dosage: 975 MG, UNK
  3. ALPRAZOLAM [Suspect]
     Dosage: 2.8 MG, UNK
  4. PAROXETINE [Suspect]
     Dosage: 30 MG, UNK

REACTIONS (3)
  - Electrocardiogram QT prolonged [Unknown]
  - Blood pressure increased [Unknown]
  - Overdose [Unknown]
